FAERS Safety Report 9044641 (Version 5)
Quarter: 2013Q2

REPORT INFORMATION
  Report Type: Spontaneous
  Country: US (occurrence: US)
  Receive Date: 20130130
  Receipt Date: 20130617
  Transmission Date: 20140414
  Serious: Yes (Other)
  Sender: FDA-Public Use
  Company Number: US-CELGENEUS-163-21880-12113807

PATIENT
  Age: 72 Year
  Sex: Male
  Weight: 95.3 kg

DRUGS (18)
  1. REVLIMID [Suspect]
     Indication: PLASMA CELL MYELOMA
     Dosage: 10 MILLIGRAM
     Route: 048
     Dates: start: 20120808, end: 20121003
  2. REVLIMID [Suspect]
     Dosage: 25 MILLIGRAM
     Route: 048
     Dates: start: 20121126
  3. REVLIMID [Suspect]
     Dosage: 10 MILLIGRAM
     Route: 048
     Dates: start: 2012
  4. ASPIRIN [Concomitant]
     Indication: PRODUCT USED FOR UNKNOWN INDICATION
     Dosage: 81 MILLIGRAM
     Route: 048
  5. IRON [Concomitant]
     Indication: SUPPLEMENTATION THERAPY
     Route: 048
  6. ATENOLOL [Concomitant]
     Indication: PRODUCT USED FOR UNKNOWN INDICATION
     Dosage: 25 MILLIGRAM
     Route: 048
  7. MULTIVITAMINS [Concomitant]
     Indication: PRODUCT USED FOR UNKNOWN INDICATION
     Route: 048
  8. OSTEO-BI-FLEX [Concomitant]
     Indication: PRODUCT USED FOR UNKNOWN INDICATION
     Route: 065
  9. LORATADINE [Concomitant]
     Indication: PRODUCT USED FOR UNKNOWN INDICATION
     Dosage: 10 MILLIGRAM
     Route: 048
  10. AMOXICILLIN [Concomitant]
     Indication: PRODUCT USED FOR UNKNOWN INDICATION
     Dosage: 4 CAPSULE
     Route: 048
  11. AMOXICILLIN [Concomitant]
     Route: 048
  12. VENTOLIN HFA [Concomitant]
     Indication: PRODUCT USED FOR UNKNOWN INDICATION
     Dosage: 2 PUFFS
     Route: 048
  13. VENTOLIN HFA [Concomitant]
     Route: 055
  14. ZOMETA [Concomitant]
     Indication: PRODUCT USED FOR UNKNOWN INDICATION
     Dosage: 4MG/100ML
     Route: 041
  15. ZOMETA [Concomitant]
     Dosage: 4MG/5ML
     Route: 065
  16. SULFAMETHOXAZOLE TMP DS [Concomitant]
     Indication: PRODUCT USED FOR UNKNOWN INDICATION
     Dosage: 800-160MG, 1 TABLET
     Route: 048
  17. DEXAMETHASONE [Concomitant]
     Indication: PRODUCT USED FOR UNKNOWN INDICATION
     Dosage: 40 MILLIGRAM
     Route: 048
     Dates: start: 201208
  18. GLUCOSAMINE CHONDROITIN [Concomitant]
     Indication: PRODUCT USED FOR UNKNOWN INDICATION
     Route: 048

REACTIONS (13)
  - Pancytopenia [Recovered/Resolved]
  - Haemorrhage urinary tract [Recovered/Resolved]
  - Nephrolithiasis [Recovered/Resolved]
  - Tinnitus [Not Recovered/Not Resolved]
  - Impaired healing [Not Recovered/Not Resolved]
  - Visual acuity reduced [Not Recovered/Not Resolved]
  - Urinary tract infection [Recovered/Resolved]
  - Fatigue [Recovering/Resolving]
  - Oedema peripheral [Recovered/Resolved]
  - Contusion [Recovering/Resolving]
  - Constipation [Unknown]
  - Diarrhoea [Recovering/Resolving]
  - Joint swelling [Unknown]
